FAERS Safety Report 7220555-1 (Version None)
Quarter: 2011Q1

REPORT INFORMATION
  Report Type: 
  Country: None (occurrence: None)
  Receive Date: 20110111
  Receipt Date: 20101222
  Transmission Date: 20110831
  Serious: No
  Sender: FDA-Public Use
  Company Number: US-B.I. PHARMACEUTICALS,INC./RIDGEFIELD-2010-BP-15376BP

PATIENT
  Sex: Male

DRUGS (10)
  1. METFORMIN [Concomitant]
     Indication: DIABETES MELLITUS
  2. DIGOXIN [Concomitant]
     Indication: ATRIAL FIBRILLATION
  3. CARVEDILOL [Concomitant]
     Indication: HYPERTENSION
  4. SOLOSTAR [Concomitant]
     Indication: DIABETES MELLITUS
  5. PANTOPRAZOLE [Concomitant]
     Indication: GASTROOESOPHAGEAL REFLUX DISEASE
  6. SIMVASTATIN [Concomitant]
     Indication: BLOOD CHOLESTEROL INCREASED
  7. PRADAXA [Suspect]
     Indication: ATRIAL FIBRILLATION
     Dosage: 150 MG
     Route: 048
     Dates: start: 20101201, end: 20101201
  8. NORTRYPTYLLINE [Concomitant]
     Indication: MIGRAINE
  9. PRADAXA [Suspect]
     Dosage: 300 MG
     Route: 048
     Dates: start: 20101201, end: 20101201
  10. LISINOPRIL [Concomitant]
     Indication: PROPHYLAXIS

REACTIONS (1)
  - BLOOD GLUCOSE INCREASED [None]
